FAERS Safety Report 12879695 (Version 1)
Quarter: 2016Q4

REPORT INFORMATION
  Report Type: Other
  Country: EG (occurrence: EG)
  Receive Date: 20161025
  Receipt Date: 20161025
  Transmission Date: 20170207
  Serious: Yes (Other)
  Sender: FDA-Public Use
  Company Number: EG-LUPIN PHARMACEUTICALS INC.-2016-02718

PATIENT
  Age: 13 Year
  Sex: Male

DRUGS (1)
  1. CEFTRIAXONE. [Suspect]
     Active Substance: CEFTRIAXONE
     Indication: PNEUMONIA
     Dosage: 80MG/KG
     Route: 065

REACTIONS (1)
  - Nephrolithiasis [Recovered/Resolved]
